FAERS Safety Report 8242914-0 (Version None)
Quarter: 2012Q1

REPORT INFORMATION
  Report Type: 
  Country: None (occurrence: None)
  Receive Date: 20120329
  Receipt Date: 20120329
  Transmission Date: 20120608
  Serious: Yes (Other)
  Sender: FDA-Public Use
  Company Number: None

PATIENT
  Sex: Female
  Weight: 61.234 kg

DRUGS (1)
  1. ZOLEDRONIC ACID (RECLAST) [Suspect]
     Indication: OSTEOPOROSIS
     Dosage: 5 MG
     Route: 041
     Dates: start: 20120320, end: 20120320

REACTIONS (8)
  - ARTHRALGIA [None]
  - FATIGUE [None]
  - MYALGIA [None]
  - HYPOTENSION [None]
  - IMPAIRED WORK ABILITY [None]
  - RASH ERYTHEMATOUS [None]
  - INFLUENZA LIKE ILLNESS [None]
  - DYSPNOEA [None]
